FAERS Safety Report 20335289 (Version 1)
Quarter: 2022Q1

REPORT INFORMATION
  Report Type: Spontaneous
  Country: US (occurrence: None)
  Receive Date: 20220113
  Receipt Date: 20220113
  Transmission Date: 20220423
  Serious: Yes (Disabling)
  Sender: FDA-Public Use
  Company Number: None

PATIENT
  Age: 71 Year
  Sex: Female
  Weight: 58.05 kg

DRUGS (1)
  1. HYDROXYCHLOROQUINE [Suspect]
     Active Substance: HYDROXYCHLOROQUINE
     Indication: Rheumatoid arthritis
     Dates: start: 20210201, end: 20210601

REACTIONS (4)
  - Drug ineffective [None]
  - C-reactive protein increased [None]
  - Rheumatoid arthritis [None]
  - Condition aggravated [None]

NARRATIVE: CASE EVENT DATE: 20210304
